FAERS Safety Report 9202010 (Version 1)
Quarter: 2013Q2

REPORT INFORMATION
  Report Type: Spontaneous
  Country: GB (occurrence: GB)
  Receive Date: 20130401
  Receipt Date: 20130401
  Transmission Date: 20140414
  Serious: Yes (Death, Other)
  Sender: FDA-Public Use
  Company Number: GB-ABBOTT-13P-167-1069638-00

PATIENT
  Age: 87 Year
  Sex: Male
  Weight: 68 kg

DRUGS (6)
  1. BIAXIN [Suspect]
     Indication: OSTEOMYELITIS
     Route: 048
     Dates: start: 20121101, end: 20130211
  2. SIMVASTATIN [Suspect]
     Indication: HYPERCHOLESTEROLAEMIA
     Route: 048
     Dates: start: 20130211, end: 20130218
  3. FUSIDIC ACID [Suspect]
     Indication: OSTEOMYELITIS
     Dosage: 3 SEPARATE DOSES
     Route: 048
     Dates: start: 20121220, end: 20130211
  4. ASPIRIN [Concomitant]
     Indication: PRODUCT USED FOR UNKNOWN INDICATION
  5. LANTUS [Concomitant]
     Indication: PRODUCT USED FOR UNKNOWN INDICATION
  6. LANSOPRAZOLE [Concomitant]
     Indication: PRODUCT USED FOR UNKNOWN INDICATION

REACTIONS (4)
  - Rhabdomyolysis [Fatal]
  - Sepsis [Fatal]
  - Renal failure acute [Not Recovered/Not Resolved]
  - Medication error [Not Recovered/Not Resolved]
